FAERS Safety Report 13673864 (Version 1)
Quarter: 2017Q2

REPORT INFORMATION
  Report Type: Spontaneous
  Country: US (occurrence: US)
  Receive Date: 20170621
  Receipt Date: 20170621
  Transmission Date: 20170830
  Serious: No
  Sender: FDA-Public Use
  Company Number: US-ZYDUS-011895

PATIENT
  Age: 72 Year
  Sex: Male

DRUGS (2)
  1. TAMSULOSIN/TAMSULOSIN HYDROCHLORIDE [Suspect]
     Active Substance: TAMSULOSIN HYDROCHLORIDE
     Indication: POLLAKIURIA
     Route: 048
     Dates: start: 20160701
  2. METOPROLOL/METOPROLOL FUMARATE/METOPROLOL SUCCINATE/METOPROLOL TARTRATE [Concomitant]
     Indication: HYPERTENSION
     Route: 048
     Dates: start: 2006

REACTIONS (1)
  - Orgasmic sensation decreased [Not Recovered/Not Resolved]

NARRATIVE: CASE EVENT DATE: 201607
